FAERS Safety Report 11462981 (Version 1)
Quarter: 2015Q3

REPORT INFORMATION
  Report Type: Spontaneous
  Country: US (occurrence: US)
  Receive Date: 20150831
  Receipt Date: 20150831
  Transmission Date: 20151125
  Serious: No
  Sender: FDA-Public Use
  Company Number: US-ELI_LILLY_AND_COMPANY-US201102001127

PATIENT
  Age: 22 Year
  Sex: Female

DRUGS (1)
  1. CYMBALTA [Suspect]
     Active Substance: DULOXETINE HYDROCHLORIDE
     Indication: MOOD SWINGS
     Dosage: 30 MG, DAILY (1/D)
     Dates: start: 201011

REACTIONS (4)
  - Fatigue [Unknown]
  - Off label use [Recovered/Resolved]
  - Heart rate increased [Unknown]
  - Somnolence [Unknown]

NARRATIVE: CASE EVENT DATE: 201011
